FAERS Safety Report 13656396 (Version 1)
Quarter: 2017Q2

REPORT INFORMATION
  Report Type: Spontaneous
  Country: US (occurrence: US)
  Receive Date: 20170615
  Receipt Date: 20170615
  Transmission Date: 20170830
  Serious: Yes (Other)
  Sender: FDA-Public Use
  Company Number: US-TEVA-777700USA

PATIENT
  Age: 80 Year
  Sex: Female

DRUGS (2)
  1. SYNTHROID [Concomitant]
     Active Substance: LEVOTHYROXINE SODIUM
     Indication: THYROID DISORDER
  2. NITROFURANTOIN. [Suspect]
     Active Substance: NITROFURANTOIN
     Indication: URINARY TRACT INFECTION
     Route: 065
     Dates: start: 201602, end: 201602

REACTIONS (11)
  - Gastric disorder [Unknown]
  - Burning sensation [Unknown]
  - Gastrointestinal ulcer [Unknown]
  - Neck pain [Unknown]
  - Chest pain [Unknown]
  - Dysphagia [Unknown]
  - Malaise [Unknown]
  - Skin disorder [Unknown]
  - Pain [Unknown]
  - Diarrhoea [Unknown]
  - Loss of consciousness [Unknown]
